FAERS Safety Report 24187370 (Version 1)
Quarter: 2024Q3

REPORT INFORMATION
  Report Type: Spontaneous
  Country: VE (occurrence: VE)
  Receive Date: 20240808
  Receipt Date: 20240808
  Transmission Date: 20241017
  Serious: Yes (Hospitalization, Other)
  Sender: Steriscience PTE
  Company Number: VE-STERISCIENCE B.V.-2024-ST-001146

PATIENT
  Age: 21 Year
  Sex: Female

DRUGS (1)
  1. BUPIVACAINE [Suspect]
     Active Substance: BUPIVACAINE
     Indication: Epidural anaesthesia
     Dosage: 10 MILLILITER
     Route: 008

REACTIONS (3)
  - Pneumorrhachis [Recovered/Resolved]
  - Maternal exposure during delivery [Unknown]
  - Wrong technique in product usage process [Unknown]
